FAERS Safety Report 9262481 (Version 3)
Quarter: 2013Q3

REPORT INFORMATION
  Report Type: Spontaneous
  Country: IT (occurrence: IT)
  Receive Date: 20130430
  Receipt Date: 20130823
  Transmission Date: 20140515
  Serious: Yes (Disabling, Other)
  Sender: FDA-Public Use
  Company Number: IT-AMGEN-ITASP2013028988

PATIENT
  Age: 72 Year
  Sex: Female

DRUGS (8)
  1. PROLIA [Suspect]
     Indication: OSTEOPOROSIS
     Dosage: UNK
     Route: 058
     Dates: start: 20120101, end: 20130101
  2. BONVIVA [Concomitant]
     Indication: OSTEOPOROSIS
     Dosage: 1 DF, CYCLICAL
     Route: 048
     Dates: start: 20100501, end: 20120501
  3. OPTINATE [Concomitant]
     Indication: OSTEOPOROSIS
     Dosage: 1 DF, CYCLICAL
     Route: 048
     Dates: start: 20030101, end: 20120401
  4. DIBASE [Concomitant]
     Dosage: UNK
     Dates: start: 20080101
  5. SIMESTAT [Concomitant]
     Dosage: 20 MG, UNK
     Dates: start: 20061001
  6. DELAPRIDE [Concomitant]
     Dosage: UNK
     Dates: start: 20030101
  7. DIFOSFONAL [Concomitant]
  8. GENALEN [Concomitant]

REACTIONS (4)
  - Fracture [Unknown]
  - Osteonecrosis of jaw [Not Recovered/Not Resolved]
  - Ulcer [Unknown]
  - Tooth disorder [Unknown]
